FAERS Safety Report 8460869-0 (Version None)
Quarter: 2012Q2

REPORT INFORMATION
  Report Type: 
  Country: None (occurrence: None)
  Receive Date: 20120625
  Receipt Date: 20120620
  Transmission Date: 20120825
  Serious: Yes (Hospitalization)
  Sender: FDA-Public Use
  Company Number: US-AMGEN-USASP2012032356

PATIENT
  Age: 80 Year
  Sex: Female
  Weight: 74.83 kg

DRUGS (3)
  1. CALCIUM [Concomitant]
  2. PROLIA [Suspect]
     Indication: OSTEOPOROSIS POSTMENOPAUSAL
     Dosage: 60 MG, ONE TIME DOSE
     Route: 030
     Dates: start: 20120419, end: 20120419
  3. VITAMIN D [Concomitant]

REACTIONS (5)
  - VOMITING [None]
  - HYPONATRAEMIA [None]
  - DIARRHOEA [None]
  - BONE PAIN [None]
  - HYPOCALCAEMIA [None]
